FAERS Safety Report 15964325 (Version 1)
Quarter: 2019Q1

REPORT INFORMATION
  Report Type: Spontaneous
  Country: US (occurrence: US)
  Receive Date: 20190215
  Receipt Date: 20190215
  Transmission Date: 20190417
  Serious: No
  Sender: FDA-Public Use
  Company Number: US-LUPIN PHARMACEUTICALS INC.-2019-00497

PATIENT
  Sex: Male

DRUGS (2)
  1. ZOLPIDEM TARTRATE EXTENDED RELEASE TABLET USP, 6.25 MG [Suspect]
     Active Substance: ZOLPIDEM TARTRATE
     Indication: PRODUCT USED FOR UNKNOWN INDICATION
     Dosage: UNK
     Route: 065
  2. ZOLPIDEM TARTARATE [Suspect]
     Active Substance: ZOLPIDEM TARTRATE
     Indication: PRODUCT USED FOR UNKNOWN INDICATION
     Dosage: 5 MG, QD (AT BED TIME OR TAKING ONE UPON WAKING UP)
     Route: 065

REACTIONS (4)
  - Middle insomnia [Unknown]
  - Drug effect incomplete [Unknown]
  - Insomnia [Unknown]
  - Drug ineffective [Unknown]
